FAERS Safety Report 8308545-9 (Version None)
Quarter: 2012Q2

REPORT INFORMATION
  Report Type: 
  Country: None (occurrence: None)
  Receive Date: 20120424
  Receipt Date: 20120418
  Transmission Date: 20120825
  Serious: Yes (Other)
  Sender: FDA-Public Use
  Company Number: US-JNJFOC-20120408742

PATIENT
  Sex: Female
  Weight: 58.06 kg

DRUGS (6)
  1. LEVAQUIN [Suspect]
     Indication: PNEUMONIA
     Route: 048
     Dates: start: 20120109, end: 20120101
  2. CELEBREX [Concomitant]
     Indication: PAIN IN EXTREMITY
     Route: 048
  3. NEURONTIN [Concomitant]
     Indication: BACK PAIN
     Route: 048
  4. NEURONTIN [Concomitant]
     Indication: PAIN IN EXTREMITY
     Route: 048
  5. ZOLOFT [Concomitant]
     Indication: DEPRESSION
     Route: 048
  6. CELEBREX [Concomitant]
     Indication: BACK PAIN
     Route: 048

REACTIONS (3)
  - BACK PAIN [None]
  - ARTHRALGIA [None]
  - JOINT SWELLING [None]
